FAERS Safety Report 18215491 (Version 1)
Quarter: 2020Q3

REPORT INFORMATION
  Report Type: Spontaneous
  Country: US (occurrence: US)
  Receive Date: 20200831
  Receipt Date: 20200831
  Transmission Date: 20201103
  Serious: No
  Sender: FDA-Public Use
  Company Number: US-SUNOVION-2020SUN002452

PATIENT
  Age: 26 Year
  Sex: Female

DRUGS (5)
  1. LATUDA [Suspect]
     Active Substance: LURASIDONE HYDROCHLORIDE
     Indication: MAJOR DEPRESSION
     Dosage: 40 MG
     Route: 048
  2. TRAZODONE [Concomitant]
     Active Substance: TRAZODONE HYDROCHLORIDE
     Indication: SLEEP DISORDER
     Dosage: UNK
  3. LITHIUM. [Concomitant]
     Active Substance: LITHIUM
     Dosage: UNK
  4. LATUDA [Suspect]
     Active Substance: LURASIDONE HYDROCHLORIDE
     Indication: POST-TRAUMATIC STRESS DISORDER
     Dosage: 20 MG
     Route: 048
  5. PRAZOSIN. [Concomitant]
     Active Substance: PRAZOSIN
     Dosage: UNK

REACTIONS (2)
  - Off label use [Unknown]
  - Urticaria [Recovered/Resolved]
